FAERS Safety Report 15023037 (Version 1)
Quarter: 2018Q2

REPORT INFORMATION
  Report Type: Spontaneous
  Country: US (occurrence: US)
  Receive Date: 20180602
  Receipt Date: 20180602
  Transmission Date: 20180711
  Serious: Yes (Death)
  Sender: FDA-Public Use
  Company Number: None

PATIENT
  Age: 65 Year
  Sex: Female
  Weight: 69.75 kg

DRUGS (7)
  1. NEUROTIN [Concomitant]
     Active Substance: GABAPENTIN
  2. MYLOTARG [Suspect]
     Active Substance: GEMTUZUMAB OZOGAMICIN
     Indication: ACUTE MYELOID LEUKAEMIA
     Dosage: ?          QUANTITY:1 INFUSION;OTHER FREQUENCY:ON DAYS 1, 4 AND 7;?
     Route: 042
     Dates: start: 20180313, end: 20180319
  3. NORCO [Concomitant]
     Active Substance: ACETAMINOPHEN\HYDROCODONE BITARTRATE
  4. VITAMIN C [Concomitant]
     Active Substance: ASCORBIC ACID
  5. CALCIUM [Concomitant]
     Active Substance: CALCIUM
  6. VITAMIN D [Concomitant]
     Active Substance: CHOLECALCIFEROL
  7. LOW DOSE ASPIRIN [Concomitant]
     Active Substance: ASPIRIN

REACTIONS (4)
  - Insomnia [None]
  - Haemorrhage [None]
  - Pyrexia [None]
  - Pain [None]

NARRATIVE: CASE EVENT DATE: 20180313
